FAERS Safety Report 7161459-2 (Version None)
Quarter: 2010Q4

REPORT INFORMATION
  Report Type: 
  Country: None (occurrence: None)
  Receive Date: 20101215
  Receipt Date: 20101213
  Transmission Date: 20110411
  Serious: Yes (Hospitalization)
  Sender: FDA-Public Use
  Company Number: US-BRISTOL-MYERS SQUIBB COMPANY-15438583

PATIENT
  Age: 2 Year
  Sex: Male

DRUGS (1)
  1. ABILIFY [Suspect]
     Dosage: 1DF:7 PILLS

REACTIONS (6)
  - ACCIDENTAL OVERDOSE [None]
  - BRADYPHRENIA [None]
  - HYPOTENSION [None]
  - PYREXIA [None]
  - SOMNOLENCE [None]
  - VOMITING [None]
